FAERS Safety Report 11376212 (Version 1)
Quarter: 2015Q3

REPORT INFORMATION
  Report Type: Spontaneous
  Country: US (occurrence: US)
  Receive Date: 20150813
  Receipt Date: 20150813
  Transmission Date: 20151125
  Serious: No
  Sender: FDA-Public Use
  Company Number: US-PFIZER INC-2015264759

PATIENT
  Age: 66 Year
  Sex: Male

DRUGS (3)
  1. PENTOTHAL [Suspect]
     Active Substance: THIOPENTAL SODIUM
     Dosage: UNK
  2. LIPITOR [Suspect]
     Active Substance: ATORVASTATIN CALCIUM
     Dosage: UNK
  3. COZAAR [Suspect]
     Active Substance: LOSARTAN POTASSIUM
     Dosage: UNK

REACTIONS (1)
  - Drug hypersensitivity [Unknown]
